FAERS Safety Report 20523372 (Version 7)
Quarter: 2022Q3

REPORT INFORMATION
  Report Type: Report from Study
  Country: US (occurrence: US)
  Receive Date: 20220228
  Receipt Date: 20220801
  Transmission Date: 20221027
  Serious: Yes (Other)
  Sender: FDA-Public Use
  Company Number: US-NOVARTISTESTPH-NVSC2022US044175

PATIENT
  Sex: Female

DRUGS (2)
  1. ENTRESTO [Suspect]
     Active Substance: SACUBITRIL\VALSARTAN
     Indication: Product used for unknown indication
     Dosage: 1 DOSAGE FORM, BID(24/26MG)
     Route: 048
  2. BENADRYL [Concomitant]
     Active Substance: DIPHENHYDRAMINE HYDROCHLORIDE
     Indication: Product used for unknown indication
     Dosage: 50 MG
     Route: 042

REACTIONS (8)
  - Atrial fibrillation [Unknown]
  - Malaise [Unknown]
  - Somnolence [Unknown]
  - COVID-19 [Unknown]
  - Gastric disorder [Unknown]
  - Abdominal pain upper [Unknown]
  - Hypotension [Unknown]
  - Atrial flutter [Unknown]
